FAERS Safety Report 7662464-X (Version None)
Quarter: 2011Q3

REPORT INFORMATION
  Report Type: 
  Country: None (occurrence: None)
  Receive Date: 20110805
  Receipt Date: 20101217
  Transmission Date: 20111222
  Serious: No
  Sender: FDA-Public Use
  Company Number: US-ABBOTT-10P-163-0692609-00

PATIENT
  Sex: Female
  Weight: 79.45 kg

DRUGS (2)
  1. NIASPAN [Suspect]
     Indication: BLOOD TRIGLYCERIDES INCREASED
     Dates: start: 20101001
  2. ATENOLOL [Concomitant]
     Indication: HEART RATE IRREGULAR

REACTIONS (1)
  - MYALGIA [None]
